FAERS Safety Report 14876867 (Version 1)
Quarter: 2018Q2

REPORT INFORMATION
  Report Type: Spontaneous
  Country: US (occurrence: US)
  Receive Date: 20180510
  Receipt Date: 20180510
  Transmission Date: 20180711
  Serious: No
  Sender: FDA-Public Use
  Company Number: US-CELLTRION INC.-2017US017704

PATIENT

DRUGS (2)
  1. INFLECTRA [Suspect]
     Active Substance: INFLIXIMAB-DYYB
     Indication: CROHN^S DISEASE
     Dosage: WEEK 0, 2, 6, THEN Q6 WEEKS AND AN ORDER OF 9 VIALS EVERY 6 WEEKS AFTER INDUCTION
     Route: 065
     Dates: start: 20170915, end: 20170915
  2. INFLECTRA [Suspect]
     Active Substance: INFLIXIMAB-DYYB
     Dosage: WEEK 0, 2, 6, THEN Q6 WEEKS AND AN ORDER OF 9 VIALS EVERY 6 WEEKS AFTER INDUCTION
     Route: 065
     Dates: start: 20171115, end: 20171115

REACTIONS (2)
  - Inappropriate schedule of drug administration [Unknown]
  - Drug prescribing error [Unknown]
